FAERS Safety Report 20671299 (Version 1)
Quarter: 2022Q2

REPORT INFORMATION
  Report Type: Report from Study
  Country: US (occurrence: US)
  Receive Date: 20220404
  Receipt Date: 20220404
  Transmission Date: 20220721
  Serious: Yes (Other)
  Sender: FDA-Public Use
  Company Number: US-JAZZ-2022-US-010118

PATIENT
  Sex: Female

DRUGS (10)
  1. XYWAV [Suspect]
     Active Substance: CALCIUM OXYBATE\MAGNESIUM OXYBATE\POTASSIUM OXYBATE\SODIUM OXYBATE
     Indication: Hypersomnia
     Dosage: 2.25 GRAM, BID
     Route: 048
     Dates: start: 202203
  2. GAMMAGARD [Concomitant]
     Active Substance: HUMAN IMMUNOGLOBULIN G
     Dosage: 0000
     Dates: start: 20140502
  3. HYDROXYZINE HYDROCHLORIDE [Concomitant]
     Active Substance: HYDROXYZINE HYDROCHLORIDE
     Dosage: 0000
     Dates: start: 20211228
  4. ZOMIG [Concomitant]
     Active Substance: ZOLMITRIPTAN
     Dosage: 0000
     Dates: start: 20151224
  5. MINERALS\VITAMINS [Concomitant]
     Active Substance: MINERALS\VITAMINS
     Dosage: 0000
     Dates: start: 20151224
  6. MAGNESIUM OXIDE [Concomitant]
     Active Substance: MAGNESIUM OXIDE
     Dosage: 0000
     Dates: start: 20151224
  7. SULFACETAMIDE SODIUM [Concomitant]
     Active Substance: SULFACETAMIDE SODIUM
     Dosage: 0000
     Dates: start: 20151224
  8. LEVOTHYROXINE [Concomitant]
     Active Substance: LEVOTHYROXINE
     Dosage: 0000
     Dates: start: 20211228
  9. SINGULAIR [Concomitant]
     Active Substance: MONTELUKAST SODIUM
     Dosage: 0000
     Dates: start: 20211228
  10. NASONEX [Concomitant]
     Active Substance: MOMETASONE FUROATE
     Dosage: 0000
     Dates: start: 20211228

REACTIONS (7)
  - Primary immunodeficiency syndrome [Unknown]
  - Pyrexia [Unknown]
  - Somnambulism [Unknown]
  - Night sweats [Unknown]
  - Intentional dose omission [Unknown]
  - Wrong dose [Unknown]
  - Therapy interrupted [Unknown]
